FAERS Safety Report 5049729-5 (Version None)
Quarter: 2006Q3

REPORT INFORMATION
  Report Type: 
  Country: None (occurrence: None)
  Receive Date: 20060707
  Receipt Date: 20060628
  Transmission Date: 20061208
  Serious: Yes (Life-Threatening)
  Sender: FDA-Public Use
  Company Number: T200600581

PATIENT
  Age: 76 Year
  Sex: Male

DRUGS (3)
  1. OPTIRAY 320 [Suspect]
     Indication: CATHETERISATION CARDIAC
     Dosage: 8 ML, SINGLE, INTRA-ARTERIAL
     Route: 013
     Dates: start: 20060522, end: 20060522
  2. LOPRESSOR [Concomitant]
  3. ASPIRIN [Concomitant]

REACTIONS (1)
  - VENTRICULAR FIBRILLATION [None]
